FAERS Safety Report 15612607 (Version 2)
Quarter: 2018Q4

REPORT INFORMATION
  Report Type: Report from Study
  Country: GT (occurrence: GT)
  Receive Date: 20181113
  Receipt Date: 20181128
  Transmission Date: 20190205
  Serious: Yes (Hospitalization, Other)
  Sender: FDA-Public Use
  Company Number: PHHY2018GT151949

PATIENT
  Sex: Male
  Weight: 83.9 kg

DRUGS (4)
  1. VYMADA [Suspect]
     Active Substance: SACUBITRIL\VALSARTAN
     Indication: HYPERTENSION
  2. VYMADA [Suspect]
     Active Substance: SACUBITRIL\VALSARTAN
     Indication: ARRHYTHMIA
     Dosage: 1 DF50 MG (24.3 MG SACUBITRIL AND 25.7 MG VALSARTAN), QD
     Route: 065
  3. EXFORGE HCT [Suspect]
     Active Substance: AMLODIPINE BESYLATE\HYDROCHLOROTHIAZIDE\VALSARTAN
     Indication: PRODUCT USED FOR UNKNOWN INDICATION
     Dosage: (AMLODIPINE 10 MG, HYDROCHLOROTHIAZIDE 25 MG, VALSARTAN 320 MG) (3 YEARS AGO)
     Route: 065
     Dates: end: 20180120
  4. NEBILET [Concomitant]
     Active Substance: NEBIVOLOL
     Indication: PRODUCT USED FOR UNKNOWN INDICATION
     Dosage: 0.5 DF, QD
     Route: 048

REACTIONS (5)
  - Blood pressure decreased [Unknown]
  - Product use in unapproved indication [Unknown]
  - Blood sodium decreased [Recovering/Resolving]
  - Cardiac dysfunction [Unknown]
  - Hypoxia [Recovering/Resolving]
